FAERS Safety Report 12502281 (Version 1)
Quarter: 2016Q2

REPORT INFORMATION
  Report Type: Spontaneous
  Country: JP (occurrence: JP)
  Receive Date: 20160627
  Receipt Date: 20160627
  Transmission Date: 20160815
  Serious: Yes (Hospitalization)
  Sender: FDA-Public Use
  Company Number: JP-MYLANLABS-2016M1025504

PATIENT

DRUGS (5)
  1. VANCOMYCIN MYLAN [Suspect]
     Active Substance: VANCOMYCIN
     Indication: OTITIS MEDIA CHRONIC
     Dosage: 1.5 G, BID
     Route: 041
     Dates: start: 20160509, end: 20160511
  2. VANCOMYCIN MYLAN [Suspect]
     Active Substance: VANCOMYCIN
     Indication: STAPHYLOCOCCAL INFECTION
     Dosage: 1 G, TID
     Route: 041
     Dates: start: 20160512, end: 20160519
  3. LOXOPROFEN NA [Concomitant]
     Active Substance: LOXOPROFEN SODIUM
     Indication: PAIN
     Dosage: ??
     Route: 048
     Dates: start: 20160517, end: 20160519
  4. VOLTAREN [Concomitant]
     Active Substance: DICLOFENAC SODIUM
     Dosage: UNK, BID
     Route: 054
     Dates: start: 20160519
  5. VOLTAREN [Concomitant]
     Active Substance: DICLOFENAC SODIUM
     Indication: PAIN
     Dosage: UNK, QD
     Route: 054
     Dates: start: 20160516

REACTIONS (3)
  - Weight increased [Unknown]
  - Acute kidney injury [Recovering/Resolving]
  - Abdominal distension [Unknown]

NARRATIVE: CASE EVENT DATE: 20160519
